FAERS Safety Report 7579935-7 (Version None)
Quarter: 2011Q2

REPORT INFORMATION
  Report Type: 
  Country: None (occurrence: None)
  Receive Date: 20110629
  Receipt Date: 20110615
  Transmission Date: 20111010
  Serious: No
  Sender: FDA-Public Use
  Company Number: US-CELGENEUS-163-21880-11032060

PATIENT
  Sex: Female

DRUGS (1)
  1. REVLIMID [Suspect]
     Indication: MULTIPLE MYELOMA
     Dosage: 15 MILLIGRAM
     Route: 048
     Dates: start: 20101216

REACTIONS (2)
  - PRURITUS [None]
  - ALOPECIA [None]
